FAERS Safety Report 7001655-8 (Version None)
Quarter: 2010Q3

REPORT INFORMATION
  Report Type: 
  Country: None (occurrence: None)
  Receive Date: 20100916
  Receipt Date: 20100903
  Transmission Date: 20110219
  Serious: Yes (Death, Hospitalization)
  Sender: FDA-Public Use
  Company Number: 2010AC000369

PATIENT
  Age: 86 Year
  Sex: Male

DRUGS (11)
  1. DIGOXIN [Suspect]
     Indication: ATRIAL FIBRILLATION
     Dosage: 0.250 MG, QD; PO
     Route: 048
     Dates: start: 20080301, end: 20080429
  2. COUMADIN [Concomitant]
  3. SIMVASTATIN [Concomitant]
  4. DIPYRIDAMOLE [Concomitant]
  5. FAMOTIDINE [Concomitant]
  6. HYDROCODONE BITARTRATE AND ACETAMINOPHEN [Concomitant]
  7. MEGESTROL ACETATE [Concomitant]
  8. NYSTATIN [Concomitant]
  9. ENABLEX [Concomitant]
  10. UROXATRAL [Concomitant]
  11. OXYGEN [Concomitant]

REACTIONS (13)
  - ABASIA [None]
  - APHAGIA [None]
  - ARTERIOSCLEROSIS CORONARY ARTERY [None]
  - CANDIDIASIS [None]
  - CARDIO-RESPIRATORY ARREST [None]
  - DISEASE COMPLICATION [None]
  - FAILURE TO THRIVE [None]
  - INJURY [None]
  - INTERNATIONAL NORMALISED RATIO INCREASED [None]
  - LUNG NEOPLASM MALIGNANT [None]
  - ONCOLOGIC COMPLICATION [None]
  - TERMINAL STATE [None]
  - URINARY INCONTINENCE [None]
